FAERS Safety Report 5500336-7 (Version None)
Quarter: 2007Q4

REPORT INFORMATION
  Report Type: 
  Country: None (occurrence: None)
  Receive Date: 20071029
  Receipt Date: 20071019
  Transmission Date: 20080405
  Serious: Yes (Disabling, Other)
  Sender: FDA-Public Use
  Company Number: HQWYE230920SEP07

PATIENT
  Sex: Female
  Weight: 74 kg

DRUGS (6)
  1. RAPAMUNE [Suspect]
     Indication: PROPHYLAXIS AGAINST TRANSPLANT REJECTION
     Route: 048
     Dates: start: 20040630
  2. PAXIL CR [Concomitant]
  3. PROTONIX [Concomitant]
  4. PREDNISONE [Concomitant]
  5. CELLCEPT [Concomitant]
     Dates: end: 20070101
  6. CELLCEPT [Concomitant]
     Dates: start: 20070101

REACTIONS (11)
  - ASCITES [None]
  - BUDD-CHIARI SYNDROME [None]
  - DYSPNOEA [None]
  - HEPATIC ENZYME INCREASED [None]
  - LYMPHOCELE [None]
  - MALIGNANT ASCITES [None]
  - OVARIAN CANCER [None]
  - OVARIAN CYST [None]
  - PERICARDITIS [None]
  - PORTAL HYPERTENSION [None]
  - SEROMA [None]
